FAERS Safety Report 5660278-3 (Version None)
Quarter: 2008Q1

REPORT INFORMATION
  Report Type: 
  Country: None (occurrence: None)
  Receive Date: 20080306
  Receipt Date: 20080220
  Transmission Date: 20080703
  Serious: Yes (Other)
  Sender: FDA-Public Use
  Company Number: S08-FRA-00811-01

PATIENT
  Sex: Female

DRUGS (1)
  1. ESCITALOPRAM [Suspect]
     Dosage: 10 MG QD PO
     Route: 048

REACTIONS (2)
  - CHEST PAIN [None]
  - RESPIRATORY DISORDER [None]
